FAERS Safety Report 10479095 (Version 1)
Quarter: 2014Q3

REPORT INFORMATION
  Report Type: Spontaneous
  Country: DE (occurrence: DE)
  Receive Date: 20140926
  Receipt Date: 20140926
  Transmission Date: 20150326
  Serious: Yes (Death, Other)
  Sender: FDA-Public Use
  Company Number: PHHY2014DE125285

PATIENT
  Age: 64 Year
  Sex: Male

DRUGS (4)
  1. PIRENZEPINE [Suspect]
     Active Substance: PIRENZEPINE
  2. VENLAFAXINE [Concomitant]
     Active Substance: VENLAFAXINE HYDROCHLORIDE
  3. CLOZAPINE. [Suspect]
     Active Substance: CLOZAPINE
     Dosage: 400 MG, PER DAY
  4. MIRTAZAPINE. [Concomitant]
     Active Substance: MIRTAZAPINE

REACTIONS (3)
  - Constipation [Unknown]
  - Acquired diaphragmatic eventration [Fatal]
  - Lung disorder [Fatal]
